FAERS Safety Report 17168056 (Version 1)
Quarter: 2019Q4

REPORT INFORMATION
  Report Type: Spontaneous
  Country: GB (occurrence: GB)
  Receive Date: 20191218
  Receipt Date: 20191218
  Transmission Date: 20200122
  Serious: Yes (Hospitalization, Other)
  Sender: FDA-Public Use
  Company Number: GB-TEVA-2019-GB-1152055

PATIENT
  Age: 50 Year
  Sex: Male

DRUGS (1)
  1. CARBAMAZEPINE. [Suspect]
     Active Substance: CARBAMAZEPINE
     Indication: TRIGEMINAL NEURALGIA
     Route: 048

REACTIONS (10)
  - Oropharyngeal pain [Unknown]
  - Splenomegaly [Unknown]
  - Clubbing [Unknown]
  - Liver disorder [Unknown]
  - Hepatomegaly [Unknown]
  - Pyrexia [Unknown]
  - Alanine aminotransferase increased [Unknown]
  - Lip swelling [Unknown]
  - Night sweats [Unknown]
  - Drug reaction with eosinophilia and systemic symptoms [Unknown]
